FAERS Safety Report 4345961-4 (Version None)
Quarter: 2004Q1

REPORT INFORMATION
  Report Type: 
  Country: None (occurrence: None)
  Receive Date: 20040325
  Receipt Date: 20040116
  Transmission Date: 20041129
  Serious: No
  Sender: FDA-Public Use
  Company Number: USA040156814

PATIENT
  Age: 73 Year
  Sex: Male

DRUGS (6)
  1. FORTEO [Suspect]
     Dates: start: 20031101, end: 20040109
  2. FAMOTIDINE [Concomitant]
  3. CALTRATE (CALCIUM CARBONATE) [Concomitant]
  4. FOLATE SODIUM [Concomitant]
  5. ALENDRONATE SODIUM [Concomitant]
  6. PREDNISONE [Concomitant]

REACTIONS (1)
  - PRURITUS [None]
